FAERS Safety Report 9758855 (Version 1)
Quarter: 2013Q4

REPORT INFORMATION
  Report Type: Spontaneous
  Country: US (occurrence: None)
  Receive Date: 20131216
  Receipt Date: 20131216
  Transmission Date: 20140711
  Serious: Yes (Other)
  Sender: FDA-Public Use
  Company Number: 082259

PATIENT
  Sex: Female

DRUGS (3)
  1. CIMZIA [Suspect]
     Indication: CROHN^S DISEASE
     Dosage: ( )
  2. ENTOCORT [Concomitant]
  3. AZATHIOPRINE [Concomitant]

REACTIONS (6)
  - Suicidal ideation [None]
  - Urinary tract infection [None]
  - Depression [None]
  - Anxiety [None]
  - Memory impairment [None]
  - Urinary tract disorder [None]
